FAERS Safety Report 22169018 (Version 2)
Quarter: 2023Q2

REPORT INFORMATION
  Report Type: Spontaneous
  Country: NO (occurrence: NO)
  Receive Date: 20230404
  Receipt Date: 20230509
  Transmission Date: 20230722
  Serious: Yes (Hospitalization)
  Sender: FDA-Public Use
  Company Number: NO-STRIDES ARCOLAB LIMITED-2023SP004767

PATIENT
  Age: 8 Decade
  Sex: Female

DRUGS (5)
  1. DONEPEZIL [Suspect]
     Active Substance: DONEPEZIL
     Indication: Dementia Alzheimer^s type
     Dosage: UNK
     Route: 065
  2. FLUPENTIXOL\MELITRACEN [Concomitant]
     Active Substance: FLUPENTIXOL\MELITRACEN
     Indication: Panic attack
     Dosage: 21 MILLIGRAM, QD, (PER DAY)
     Route: 065
  3. FLUPENTIXOL\MELITRACEN [Concomitant]
     Active Substance: FLUPENTIXOL\MELITRACEN
     Dosage: 10.5 MILLIGRAM, QD, (PER DAY)
     Route: 065
  4. SERTRALINE [Concomitant]
     Active Substance: SERTRALINE HYDROCHLORIDE
     Indication: Panic attack
     Dosage: 50 MILLIGRAM, QD, (PER DAY)
     Route: 065
  5. MIRTAZAPINE [Concomitant]
     Active Substance: MIRTAZAPINE
     Indication: Panic attack
     Dosage: 15 MILLIGRAM, QD, (PER DAY)
     Route: 065

REACTIONS (2)
  - Discomfort [Unknown]
  - Dyspepsia [Unknown]
